FAERS Safety Report 16201499 (Version 1)
Quarter: 2019Q2

REPORT INFORMATION
  Report Type: Spontaneous
  Country: US (occurrence: US)
  Receive Date: 20190415
  Receipt Date: 20190415
  Transmission Date: 20190711
  Serious: Yes (Life-Threatening, Hospitalization)
  Sender: FDA-Public Use
  Company Number: None

PATIENT
  Age: 76 Year
  Sex: Female
  Weight: 81 kg

DRUGS (12)
  1. EMEND (FOSAPREPITANT DIMEGLUMINE) [Suspect]
     Active Substance: FOSAPREPITANT DIMEGLUMINE
     Indication: PROPHYLAXIS OF NAUSEA AND VOMITING
     Route: 042
     Dates: start: 20190415, end: 20190415
  2. METOPROLOL SUCCINATE. [Concomitant]
     Active Substance: METOPROLOL SUCCINATE
  3. LOSARTAN. [Concomitant]
     Active Substance: LOSARTAN
  4. CENTRUM MULTIVITAMIN [Concomitant]
  5. GRANISETRON [Concomitant]
     Active Substance: GRANISETRON
     Dates: start: 20190325
  6. ELIQUIS [Concomitant]
     Active Substance: APIXABAN
  7. CARBOPLATIN. [Concomitant]
     Active Substance: CARBOPLATIN
     Dates: start: 20190325
  8. DEXAMETHASONE. [Concomitant]
     Active Substance: DEXAMETHASONE
     Dates: start: 20190325
  9. ALIMTA [Concomitant]
     Active Substance: PEMETREXED DISODIUM
     Dates: start: 20190325
  10. SIMVASTATIN. [Concomitant]
     Active Substance: SIMVASTATIN
  11. OMEPRAZOLE. [Concomitant]
     Active Substance: OMEPRAZOLE
  12. ONDANSETRON [Concomitant]
     Active Substance: ONDANSETRON

REACTIONS (7)
  - Gaze palsy [None]
  - Unresponsive to stimuli [None]
  - Foaming at mouth [None]
  - Erythema [None]
  - Malaise [None]
  - Flushing [None]
  - Infusion related reaction [None]

NARRATIVE: CASE EVENT DATE: 20190415
